FAERS Safety Report 11215875 (Version 5)
Quarter: 2016Q1

REPORT INFORMATION
  Report Type: Spontaneous
  Country: US (occurrence: US)
  Receive Date: 20150624
  Receipt Date: 20160222
  Transmission Date: 20160525
  Serious: No
  Sender: FDA-Public Use
  Company Number: US-PFIZER INC-2015210652

PATIENT
  Age: 82 Year
  Sex: Male

DRUGS (11)
  1. INLYTA [Suspect]
     Active Substance: AXITINIB
     Indication: RENAL CANCER
     Dosage: 2 MG, 2X/DAY
     Dates: start: 201505
  2. PLAVIX [Concomitant]
     Active Substance: CLOPIDOGREL BISULFATE
     Indication: CARDIAC DISORDER
     Dosage: 75 MG, 1X/DAY
     Dates: start: 201505
  3. ZOFRAN [Concomitant]
     Active Substance: ONDANSETRON HYDROCHLORIDE
     Dosage: 4 MG, AS NEEDED
     Dates: start: 201505
  4. WELCHOL [Concomitant]
     Active Substance: COLESEVELAM HYDROCHLORIDE
     Indication: RENAL CANCER
     Dosage: UNK
  5. LEVOTHYROXINE. [Concomitant]
     Active Substance: LEVOTHYROXINE
     Dosage: 125 MCG ONCE ONLY M, AND 0.625 (UNITS NOT PROVIDED) ON T-W-T-F-S-S
     Dates: start: 201505
  6. TENORMIN [Concomitant]
     Active Substance: ATENOLOL
     Indication: RENAL CANCER
     Dosage: 25 MG, 2X/DAY
     Dates: start: 201505
  7. INLYTA [Suspect]
     Active Substance: AXITINIB
     Dosage: UNK
  8. LIPITOR [Concomitant]
     Active Substance: ATORVASTATIN CALCIUM
     Indication: RENAL CANCER
     Dosage: 40 MG, 1X/DAY
     Dates: start: 201505
  9. WARFARIN [Concomitant]
     Active Substance: WARFARIN
     Dosage: 10 MG, 1X/DAY
     Dates: start: 201505
  10. RANEXA [Concomitant]
     Active Substance: RANOLAZINE
     Dosage: 500 MG, 2X/DAY
     Dates: start: 201505
  11. DIGOXIN. [Concomitant]
     Active Substance: DIGOXIN
     Indication: CARDIAC DISORDER
     Dosage: 0.125 (UNSPECIFIED UNITS) 1X/DAY
     Dates: start: 201505

REACTIONS (1)
  - Stomatitis [Recovered/Resolved]

NARRATIVE: CASE EVENT DATE: 201506
